FAERS Safety Report 9373088 (Version 4)
Quarter: 2014Q4

REPORT INFORMATION
  Report Type: Spontaneous
  Country: TW (occurrence: TW)
  Receive Date: 20130627
  Receipt Date: 20141013
  Transmission Date: 20150529
  Serious: Yes (Death, Hospitalization, Other)
  Sender: FDA-Public Use
  Company Number: TW-PFIZER INC-2013186567

PATIENT
  Age: 81 Year
  Sex: Male

DRUGS (2)
  1. SUTENT [Suspect]
     Active Substance: SUNITINIB MALATE
     Indication: RENAL CELL CARCINOMA
     Dosage: 37.5 MG, 1X/DAY (3 WEEKS ON AND ONE WEEK OFF)
     Route: 048
     Dates: start: 20121122, end: 20130611
  2. SUTENT [Suspect]
     Active Substance: SUNITINIB MALATE
     Dosage: 25 MG, 1X/DAY FOR 7 DAYS ON AND 3 DAYS OFF
     Route: 048

REACTIONS (4)
  - Impaired healing [Unknown]
  - Anal abscess [Not Recovered/Not Resolved]
  - Platelet count decreased [Recovered/Resolved]
  - Death [Fatal]

NARRATIVE: CASE EVENT DATE: 201306
